FAERS Safety Report 5682755-1 (Version None)
Quarter: 2008Q1

REPORT INFORMATION
  Report Type: 
  Country: None (occurrence: None)
  Receive Date: 20080327
  Receipt Date: 20080320
  Transmission Date: 20080703
  Serious: Yes (Life-Threatening, Hospitalization)
  Sender: FDA-Public Use
  Company Number: US-GENENTECH-257845

PATIENT
  Sex: Female

DRUGS (8)
  1. XOLAIR [Suspect]
     Indication: DRUG USE FOR UNKNOWN INDICATION
     Dosage: 150 MG, UNK
     Dates: start: 20071002
  2. FORADIL [Concomitant]
     Indication: ASTHMA
  3. ASMANEX TWISTHALER [Concomitant]
     Indication: ASTHMA
  4. SYNTHROID [Concomitant]
     Indication: HYPOTHYROIDISM
     Route: 048
  5. SINGULAIR [Concomitant]
     Indication: ASTHMA
     Route: 048
  6. SINGULAIR [Concomitant]
     Indication: HYPERSENSITIVITY
  7. ACIPHEX [Concomitant]
     Indication: GASTROOESOPHAGEAL REFLUX DISEASE
     Route: 048
  8. MULTI-VITAMIN [Concomitant]
     Indication: DRUG USE FOR UNKNOWN INDICATION
     Route: 048

REACTIONS (1)
  - ANAPHYLACTIC REACTION [None]
